FAERS Safety Report 12370084 (Version 1)
Quarter: 2016Q2

REPORT INFORMATION
  Report Type: Spontaneous
  Country: CH (occurrence: CH)
  Receive Date: 20160516
  Receipt Date: 20160516
  Transmission Date: 20160815
  Serious: Yes (Other)
  Sender: FDA-Public Use
  Company Number: CH-ACORDA-ACO_122862_2016

PATIENT
  Age: 76 Year
  Sex: Male
  Weight: 94 kg

DRUGS (6)
  1. QUTENZA [Suspect]
     Active Substance: CAPSAICIN
     Dosage: 1 PATCH
     Route: 062
     Dates: start: 20150615
  2. TRAMAL [Concomitant]
     Active Substance: TRAMADOL
     Indication: PRODUCT USED FOR UNKNOWN INDICATION
     Dosage: UNK
     Route: 065
     Dates: start: 20160218, end: 20160410
  3. CO-LISINOPRIL [Concomitant]
     Active Substance: HYDROCHLOROTHIAZIDE\LISINOPRIL
     Indication: PRODUCT USED FOR UNKNOWN INDICATION
     Dosage: UNK
     Route: 065
  4. QUTENZA [Suspect]
     Active Substance: CAPSAICIN
     Dosage: UNK
     Route: 065
  5. QUTENZA [Suspect]
     Active Substance: CAPSAICIN
     Indication: NEURALGIA
     Dosage: 1 PATCH, OF 8% UNKNOWN FREQ.
     Route: 062
     Dates: start: 20150521
  6. QUTENZA [Suspect]
     Active Substance: CAPSAICIN
     Dosage: 2 DF, UNK
     Route: 065
     Dates: start: 20160316

REACTIONS (5)
  - Application site pain [Recovered/Resolved]
  - Application site dermatitis [Recovered/Resolved]
  - Drug ineffective [Unknown]
  - Application site pruritus [Recovered/Resolved]
  - Flushing [Recovered/Resolved]

NARRATIVE: CASE EVENT DATE: 20160316
